FAERS Safety Report 5282983-3 (Version None)
Quarter: 2007Q2

REPORT INFORMATION
  Report Type: 
  Country: None (occurrence: None)
  Receive Date: 20070402
  Receipt Date: 20070322
  Transmission Date: 20071010
  Serious: Yes (Death, Other)
  Sender: FDA-Public Use
  Company Number: JP-BRISTOL-MYERS SQUIBB COMPANY-13732375

PATIENT
  Age: 11 Year
  Sex: Female

DRUGS (6)
  1. IFOMIDE [Suspect]
     Indication: EWING'S SARCOMA
     Dates: start: 20060110
  2. ENDOXAN [Suspect]
     Indication: EWING'S SARCOMA
     Dates: start: 20060110
  3. VINCRISTINE SULFATE [Concomitant]
     Indication: EWING'S SARCOMA
     Dates: start: 20060110
  4. PIRARUBICIN [Concomitant]
     Indication: EWING'S SARCOMA
     Dates: start: 20060110
  5. ETOPOSIDE [Concomitant]
     Indication: EWING'S SARCOMA
     Dates: start: 20060110
  6. FLUCONAZOLE [Concomitant]
     Indication: PROPHYLAXIS
     Dates: start: 20060110

REACTIONS (7)
  - BONE MARROW FAILURE [None]
  - CYSTITIS HAEMORRHAGIC [None]
  - MALIGNANT NEOPLASM PROGRESSION [None]
  - PLEURAL EFFUSION [None]
  - PYREXIA [None]
  - RENAL ABSCESS [None]
  - RESPIRATORY FAILURE [None]
